FAERS Safety Report 7261208-3 (Version None)
Quarter: 2011Q1

REPORT INFORMATION
  Report Type: 
  Country: None (occurrence: None)
  Receive Date: 20110130
  Receipt Date: 20100917
  Transmission Date: 20110831
  Serious: No
  Sender: FDA-Public Use
  Company Number: US-ABBOTT-10P-163-0671999-00

PATIENT
  Age: 46 Year
  Sex: Male

DRUGS (3)
  1. SOME KIND OF PILL [Concomitant]
     Indication: PRODUCT USED FOR UNKNOWN INDICATION
  2. HUMIRA [Suspect]
     Indication: COLITIS ULCERATIVE
     Route: 058
     Dates: start: 20100701
  3. SUPPOSITORY [Concomitant]
     Indication: HAEMORRHAGE

REACTIONS (3)
  - HAEMORRHAGE [None]
  - INJECTION SITE PAIN [None]
  - ABDOMINAL PAIN [None]
